FAERS Safety Report 10148879 (Version 1)
Quarter: 2014Q2

REPORT INFORMATION
  Report Type: Spontaneous
  Country: CN (occurrence: CN)
  Receive Date: 20140502
  Receipt Date: 20140502
  Transmission Date: 20141212
  Serious: Yes (Other)
  Sender: FDA-Public Use
  Company Number: CN-PFIZER INC-2014120999

PATIENT
  Age: 53 Year
  Sex: Female

DRUGS (1)
  1. AMIODARONE HCL [Suspect]
     Indication: TACHYCARDIA
     Dosage: 0.2 G, 2X/DAY
     Route: 048
     Dates: start: 20130815, end: 20130816

REACTIONS (5)
  - Amaurosis [Recovering/Resolving]
  - Loss of consciousness [Recovering/Resolving]
  - Nodal arrhythmia [Recovered/Resolved]
  - Dizziness [Recovering/Resolving]
  - Bradycardia [Recovering/Resolving]
